FAERS Safety Report 13940775 (Version 3)
Quarter: 2017Q4

REPORT INFORMATION
  Report Type: Spontaneous
  Country: US (occurrence: US)
  Receive Date: 20170906
  Receipt Date: 20171220
  Transmission Date: 20180320
  Serious: Yes (Other)
  Sender: FDA-Public Use
  Company Number: US-INCYTE CORPORATION-2017IN007440

PATIENT

DRUGS (2)
  1. JAKAFI [Suspect]
     Active Substance: RUXOLITINIB
     Indication: POLYCYTHAEMIA VERA
     Dosage: 10 MG, BID
     Route: 048
     Dates: start: 20170829, end: 201709
  2. JAKAFI [Suspect]
     Active Substance: RUXOLITINIB
     Dosage: 20 MG BID
     Route: 048
     Dates: start: 201709

REACTIONS (3)
  - Platelet count increased [Unknown]
  - Blast cell count increased [Not Recovered/Not Resolved]
  - Pigmentation disorder [Unknown]

NARRATIVE: CASE EVENT DATE: 201710
